FAERS Safety Report 8565912-6 (Version None)
Quarter: 2012Q3

REPORT INFORMATION
  Report Type: 
  Country: None (occurrence: None)
  Receive Date: 20120803
  Receipt Date: 20111010
  Transmission Date: 20120928
  Serious: No
  Sender: FDA-Public Use
  Company Number: US-ABBOTT-11P-163-0862610-00

PATIENT
  Sex: Female
  Weight: 72.64 kg

DRUGS (20)
  1. NIASPAN [Suspect]
     Indication: CORONARY ARTERY DISEASE
     Dosage: AT BEDTIME
     Dates: start: 20110919
  2. VITAMIN D [Concomitant]
     Indication: PRODUCT USED FOR UNKNOWN INDICATION
  3. CALCIUM MAGNESIUM ZINC [Concomitant]
     Indication: PRODUCT USED FOR UNKNOWN INDICATION
  4. ASPIRIN [Concomitant]
     Indication: PRODUCT USED FOR UNKNOWN INDICATION
     Dosage: AT BEDTIME
  5. PRASTERONE [Concomitant]
     Indication: VITAMIN SUPPLEMENTATION
     Dosage: IN THE MORNING
  6. COQ10 [Concomitant]
     Indication: PRODUCT USED FOR UNKNOWN INDICATION
     Dosage: IN THE MORNING
  7. ALPHALIPOIC ACID [Concomitant]
     Indication: PRODUCT USED FOR UNKNOWN INDICATION
     Dosage: IN THE MORNING
  8. PROBIOTIC ACIDOLPHILLUS [Concomitant]
     Indication: PRODUCT USED FOR UNKNOWN INDICATION
     Dosage: IN THE MORNING
  9. IRON [Concomitant]
     Indication: MINERAL SUPPLEMENTATION
     Dosage: IN THE MORNING
  10. ESTROGEN [Concomitant]
     Indication: SUPPLEMENTATION THERAPY
     Dosage: IN THE MORNING
  11. GRAPEFUIT SEED EXTRACT [Concomitant]
     Indication: PRODUCT USED FOR UNKNOWN INDICATION
     Dosage: AT BEDTIME
  12. ADRENAL SUPPLEMENT SERAPHOS [Concomitant]
     Indication: PRODUCT USED FOR UNKNOWN INDICATION
     Dosage: AFTERNOON
  13. GLUCOSAMINE CHONDROITIN [Concomitant]
     Indication: PRODUCT USED FOR UNKNOWN INDICATION
  14. NATURAL E [Concomitant]
     Indication: PRODUCT USED FOR UNKNOWN INDICATION
     Dosage: AT BEDTIME
  15. BIOTIC [Concomitant]
     Indication: MEDICAL DIET
     Dosage: IN THE MORNING, ABD 5
  16. LOPRESSOR [Concomitant]
     Indication: PRODUCT USED FOR UNKNOWN INDICATION
     Dosage: IN THE MORNING
  17. MULTIMINERAL VITAMIN [Concomitant]
     Indication: PRODUCT USED FOR UNKNOWN INDICATION
     Dosage: IN THE MORNING
  18. CRANBERRY [Concomitant]
     Indication: PRODUCT USED FOR UNKNOWN INDICATION
     Dosage: EXTRACT, AT BEDTIME
  19. ASCORBIC ACID [Concomitant]
     Indication: PRODUCT USED FOR UNKNOWN INDICATION
  20. FLAX FISH OMEGA 369 [Concomitant]
     Indication: PRODUCT USED FOR UNKNOWN INDICATION

REACTIONS (1)
  - FLUSHING [None]
